APPROVED DRUG PRODUCT: METOPROLOL TARTRATE
Active Ingredient: METOPROLOL TARTRATE
Strength: 100MG
Dosage Form/Route: TABLET;ORAL
Application: A078459 | Product #003 | TE Code: AB
Applicant: IPCA LABORATORIES LTD
Approved: Jun 17, 2008 | RLD: No | RS: No | Type: RX